FAERS Safety Report 7629772-X (Version None)
Quarter: 2011Q3

REPORT INFORMATION
  Report Type: 
  Country: None (occurrence: None)
  Receive Date: 20110722
  Receipt Date: 20110711
  Transmission Date: 20111222
  Serious: Yes (Hospitalization)
  Sender: FDA-Public Use
  Company Number: FR-SANOFI-AVENTIS-2011SA043834

PATIENT
  Age: 87 Year
  Sex: Female

DRUGS (4)
  1. ZOLPIDEM [Suspect]
     Route: 048
     Dates: end: 20110523
  2. STRONTIUM RANELATE [Suspect]
     Route: 048
     Dates: start: 20110301, end: 20110523
  3. CACIT VITAMINE D3 [Concomitant]
  4. PERINDOPRIL ERBUMINE [Concomitant]

REACTIONS (3)
  - SPEECH DISORDER [None]
  - DISORIENTATION [None]
  - ISCHAEMIC STROKE [None]
